FAERS Safety Report 20920103 (Version 1)
Quarter: 2022Q2

REPORT INFORMATION
  Report Type: Spontaneous
  Country: US (occurrence: None)
  Receive Date: 20220605
  Receipt Date: 20220605
  Transmission Date: 20220721
  Serious: Yes (Other)
  Sender: FDA-Public Use
  Company Number: None

PATIENT
  Age: 55 Year
  Sex: Female

DRUGS (1)
  1. DULOXETINE HYDROCHLORIDE [Suspect]
     Active Substance: DULOXETINE HYDROCHLORIDE
     Indication: Pain
     Dosage: FREQUENCY : DAILY;?
     Route: 048
     Dates: start: 20220531

REACTIONS (6)
  - Product substitution issue [None]
  - Pain [None]
  - Mental status changes [None]
  - Depression [None]
  - Withdrawal syndrome [None]
  - Therapeutic response changed [None]

NARRATIVE: CASE EVENT DATE: 20220531
